FAERS Safety Report 6152918-X (Version None)
Quarter: 2009Q2

REPORT INFORMATION
  Report Type: 
  Country: None (occurrence: None)
  Receive Date: 20090413
  Receipt Date: 20090331
  Transmission Date: 20091009
  Serious: Yes (Other)
  Sender: FDA-Public Use
  Company Number: US-ELI_LILLY_AND_COMPANY-US200904000315

PATIENT
  Age: 12 Year
  Sex: Male

DRUGS (2)
  1. STRATTERA [Suspect]
     Indication: ATTENTION DEFICIT/HYPERACTIVITY DISORDER
     Dosage: 80 MG, UNKNOWN
     Route: 065
     Dates: start: 20070101
  2. CONCERTA [Concomitant]
     Indication: ATTENTION DEFICIT/HYPERACTIVITY DISORDER
     Dosage: 50 MG, UNKNOWN
     Route: 065
     Dates: start: 20070101, end: 20090301

REACTIONS (3)
  - ELECTROCARDIOGRAM QT PROLONGED [None]
  - ELECTROCARDIOGRAM T WAVE ABNORMAL [None]
  - SYNCOPE [None]
